FAERS Safety Report 8553435-X (Version None)
Quarter: 2012Q3

REPORT INFORMATION
  Report Type: 
  Country: None (occurrence: None)
  Receive Date: 20120731
  Receipt Date: 20120726
  Transmission Date: 20120928
  Serious: Yes (Hospitalization)
  Sender: FDA-Public Use
  Company Number: US-B.I. PHARMACEUTICALS,INC./RIDGEFIELD-2012-BP-14929BP

PATIENT
  Sex: Female

DRUGS (4)
  1. SPIRIVA [Suspect]
     Indication: EMPHYSEMA
     Dosage: 18 MCG
     Route: 055
     Dates: start: 20110101
  2. ADVAIR [Concomitant]
     Indication: EMPHYSEMA
  3. GLUCOPHAGE [Concomitant]
     Indication: DIABETES MELLITUS
  4. INSULIN [Concomitant]
     Indication: DIABETES MELLITUS

REACTIONS (4)
  - ATRIAL FIBRILLATION [None]
  - ARRHYTHMIA [None]
  - HEART RATE ABNORMAL [None]
  - CELLULITIS [None]
